FAERS Safety Report 25019490 (Version 1)
Quarter: 2025Q1

REPORT INFORMATION
  Report Type: Spontaneous
  Country: PH (occurrence: PH)
  Receive Date: 20250227
  Receipt Date: 20250227
  Transmission Date: 20250408
  Serious: Yes (Life-Threatening, Other)
  Sender: NOVARTIS
  Company Number: PH-002147023-NVSC2025PH033867

PATIENT
  Sex: Male

DRUGS (1)
  1. TRILEPTAL [Suspect]
     Active Substance: OXCARBAZEPINE
     Indication: Epilepsy
     Route: 065

REACTIONS (4)
  - Feeling abnormal [Unknown]
  - Seizure [Unknown]
  - Fine motor skill dysfunction [Unknown]
  - Drug ineffective [Unknown]
